FAERS Safety Report 15740056 (Version 2)
Quarter: 2019Q2

REPORT INFORMATION
  Report Type: Spontaneous
  Country: US (occurrence: US)
  Receive Date: 20181219
  Receipt Date: 20190424
  Transmission Date: 20190711
  Serious: Yes (Other)
  Sender: FDA-Public Use
  Company Number: US-SA-2018SA343332

PATIENT
  Age: 59 Year
  Sex: Female
  Weight: 77.11 kg

DRUGS (4)
  1. TAXOTERE [Suspect]
     Active Substance: DOCETAXEL
     Dosage: UNK UNK, Q3W
     Route: 042
     Dates: start: 20120301, end: 20120301
  2. HEXALEN [ALTRETAMINE] [Concomitant]
  3. TAXOTERE [Suspect]
     Active Substance: DOCETAXEL
     Indication: BREAST CANCER FEMALE
     Dosage: UNK UNK, Q3W
     Route: 042
     Dates: start: 20050101, end: 20050101
  4. ACTINOMYCIN C [Concomitant]
     Active Substance: CACTINOMYCIN

REACTIONS (3)
  - Psychological trauma [Unknown]
  - Alopecia [Unknown]
  - Emotional distress [Unknown]
